FAERS Safety Report 12789973 (Version 1)
Quarter: 2016Q3

REPORT INFORMATION
  Report Type: Spontaneous
  Country: JP (occurrence: JP)
  Receive Date: 20160928
  Receipt Date: 20160928
  Transmission Date: 20161109
  Serious: Yes (Other)
  Sender: FDA-Public Use
  Company Number: JP-PFIZER INC-2016441112

PATIENT

DRUGS (2)
  1. GENOTROPIN 12 MG [Suspect]
     Active Substance: SOMATROPIN
     Dosage: 1.6 MG, DAILY
     Route: 058
     Dates: start: 201512
  2. GENOTROPIN 12 MG [Suspect]
     Active Substance: SOMATROPIN
     Dosage: 3.2 MG, UNK
     Route: 058

REACTIONS (1)
  - Anhidrosis [Unknown]

NARRATIVE: CASE EVENT DATE: 201607
